FAERS Safety Report 7404508-6 (Version None)
Quarter: 2011Q2

REPORT INFORMATION
  Report Type: 
  Country: None (occurrence: None)
  Receive Date: 20110408
  Receipt Date: 20110126
  Transmission Date: 20111010
  Serious: Yes (Other)
  Sender: FDA-Public Use
  Company Number: NL-PFIZER INC-2011019174

PATIENT
  Age: 58 Year
  Sex: Female

DRUGS (1)
  1. SALAZOPYRIN [Suspect]
     Indication: RHEUMATOID ARTHRITIS
     Dosage: 500 MG, 4X/DAY
     Dates: start: 20101001

REACTIONS (9)
  - ASTHMA [None]
  - APHONIA [None]
  - LACRIMATION INCREASED [None]
  - EYE IRRITATION [None]
  - OCULAR HYPERAEMIA [None]
  - DACRYOSTENOSIS ACQUIRED [None]
  - COUGH [None]
  - OROPHARYNGEAL PAIN [None]
  - EYE SWELLING [None]
